FAERS Safety Report 25467539 (Version 1)
Quarter: 2025Q2

REPORT INFORMATION
  Report Type: Spontaneous
  Country: CA (occurrence: CA)
  Receive Date: 20250623
  Receipt Date: 20250623
  Transmission Date: 20250716
  Serious: Yes (Death)
  Sender: REGENERON
  Company Number: CA-BAYER-2025A081143

PATIENT
  Sex: Male

DRUGS (1)
  1. EYLEA [Suspect]
     Active Substance: AFLIBERCEPT
     Indication: Product used for unknown indication
     Dates: start: 20250214, end: 20250214

REACTIONS (1)
  - Illness [Fatal]

NARRATIVE: CASE EVENT DATE: 20250411
